FAERS Safety Report 10029241 (Version 2)
Quarter: 2014Q1

REPORT INFORMATION
  Report Type: Spontaneous
  Country: US (occurrence: US)
  Receive Date: 20140321
  Receipt Date: 20140321
  Transmission Date: 20141002
  Serious: Yes (Disabling)
  Sender: FDA-Public Use
  Company Number: US-GE HEALTHCARE MEDICAL DIAGNOSTICS-OSCN-PR-0806S-0346

PATIENT
  Age: 52 Year
  Sex: Female

DRUGS (85)
  1. ATIVAN [Concomitant]
     Dates: start: 2008
  2. AUGMENTIN [Concomitant]
     Indication: PRODUCT USED FOR UNKNOWN INDICATION
     Dates: start: 2004
  3. BENADRYL [Concomitant]
     Indication: PRODUCT USED FOR UNKNOWN INDICATION
     Dates: start: 2004, end: 2005
  4. BISACODYL [Concomitant]
     Indication: PRODUCT USED FOR UNKNOWN INDICATION
     Dates: start: 2004, end: 2005
  5. CLARITIN [Concomitant]
     Indication: PRODUCT USED FOR UNKNOWN INDICATION
     Dates: start: 2004, end: 2005
  6. COLACE [Concomitant]
     Indication: PRODUCT USED FOR UNKNOWN INDICATION
     Dates: start: 2003, end: 2004
  7. COMPAZINE [Concomitant]
     Indication: PRODUCT USED FOR UNKNOWN INDICATION
     Dates: start: 2004
  8. COUMADIN [Concomitant]
     Indication: PRODUCT USED FOR UNKNOWN INDICATION
     Dates: start: 2004, end: 2005
  9. COUMADIN [Concomitant]
     Dates: start: 2009
  10. DEPAKOTE [Concomitant]
     Indication: PRODUCT USED FOR UNKNOWN INDICATION
     Dates: start: 1997, end: 2010
  11. EMLA [Concomitant]
     Indication: PRODUCT USED FOR UNKNOWN INDICATION
     Route: 061
     Dates: start: 2003, end: 2005
  12. OMNISCAN [Suspect]
     Indication: BLOOD CREATININE INCREASED
     Route: 042
     Dates: start: 20041004, end: 20041004
  13. OMNISCAN [Suspect]
     Indication: HAEMATURIA
     Route: 042
     Dates: start: 20041007, end: 20041007
  14. OMNISCAN [Suspect]
     Indication: COMPLICATIONS OF TRANSPLANTED KIDNEY
  15. MAGNEVIST [Suspect]
     Indication: PELVIC VENOUS THROMBOSIS
     Route: 042
     Dates: start: 20041221, end: 20041221
  16. ALLOPURINOL [Concomitant]
     Indication: PRODUCT USED FOR UNKNOWN INDICATION
     Dates: start: 2002, end: 2005
  17. ALLOPURINOL [Concomitant]
     Dates: start: 2010
  18. AMBIEN [Concomitant]
     Indication: PRODUCT USED FOR UNKNOWN INDICATION
     Dates: start: 2003, end: 2005
  19. AMBIEN [Concomitant]
     Dates: start: 2008, end: 2009
  20. ANTITHYMOCYTE IMMUNOGLOBULIN [Concomitant]
     Indication: PRODUCT USED FOR UNKNOWN INDICATION
     Dates: start: 2004
  21. ATIVAN [Concomitant]
     Indication: PRODUCT USED FOR UNKNOWN INDICATION
     Dates: start: 1997
  22. ATIVAN [Concomitant]
     Dates: start: 2003, end: 2004
  23. EPOGEN [Concomitant]
     Indication: PRODUCT USED FOR UNKNOWN INDICATION
     Dates: start: 1999, end: 2011
  24. HEPARIN [Concomitant]
     Indication: PRODUCT USED FOR UNKNOWN INDICATION
     Dates: start: 2003
  25. HEPARIN [Concomitant]
     Dates: start: 2004
  26. IRON SULFATE [Concomitant]
     Indication: PRODUCT USED FOR UNKNOWN INDICATION
     Dates: start: 2000, end: 2005
  27. KEFLEX [Concomitant]
     Indication: PRODUCT USED FOR UNKNOWN INDICATION
     Dates: start: 1992
  28. KEFLEX [Concomitant]
     Dates: start: 1999
  29. KEFLEX [Concomitant]
     Dates: start: 2003, end: 2005
  30. LACTULOSE [Concomitant]
     Indication: PRODUCT USED FOR UNKNOWN INDICATION
     Dates: start: 2003, end: 2005
  31. LACTULOSE [Concomitant]
     Dates: start: 2010
  32. LEVAQUIN [Concomitant]
     Indication: PRODUCT USED FOR UNKNOWN INDICATION
     Dates: start: 2004
  33. LIDOCAINE [Concomitant]
     Indication: PRODUCT USED FOR UNKNOWN INDICATION
     Route: 061
     Dates: start: 2004, end: 2005
  34. LOPRESSOR [Concomitant]
     Indication: PRODUCT USED FOR UNKNOWN INDICATION
     Dates: start: 2004, end: 2005
  35. MANNITOL [Concomitant]
     Indication: PRODUCT USED FOR UNKNOWN INDICATION
     Dates: start: 2003, end: 2007
  36. MIDODRINE [Concomitant]
     Indication: PRODUCT USED FOR UNKNOWN INDICATION
     Dates: start: 2003, end: 2009
  37. MYCOPHENOLATE MOFETIL [Concomitant]
     Indication: PRODUCT USED FOR UNKNOWN INDICATION
     Dates: start: 2004
  38. NEOMYCIN SULF/POLYMYXIN B SULF/DEXAMETHASONE [Concomitant]
     Indication: PRODUCT USED FOR UNKNOWN INDICATION
     Route: 061
     Dates: start: 2003, end: 2004
  39. NEPHROCAPS [Concomitant]
     Indication: PRODUCT USED FOR UNKNOWN INDICATION
     Dates: start: 2004, end: 2005
  40. NEPHROCAPS [Concomitant]
     Dates: start: 2010
  41. OXYCODONE [Concomitant]
     Indication: PRODUCT USED FOR UNKNOWN INDICATION
     Dates: start: 2003, end: 2005
  42. OXYCONTIN [Concomitant]
     Indication: PRODUCT USED FOR UNKNOWN INDICATION
     Dates: start: 2004
  43. PERCOCET [Concomitant]
     Indication: PRODUCT USED FOR UNKNOWN INDICATION
     Dates: start: 2002, end: 2005
  44. PHOSLO [Concomitant]
     Indication: PRODUCT USED FOR UNKNOWN INDICATION
     Dates: start: 2002, end: 2010
  45. PREDNISONE [Concomitant]
     Indication: PRODUCT USED FOR UNKNOWN INDICATION
     Dates: start: 2004, end: 2005
  46. PREVACID [Concomitant]
     Indication: PRODUCT USED FOR UNKNOWN INDICATION
     Dates: start: 2004
  47. PROTONIX [Concomitant]
     Indication: PRODUCT USED FOR UNKNOWN INDICATION
     Dates: start: 2003, end: 2005
  48. QUININE SULFATE [Concomitant]
     Indication: PRODUCT USED FOR UNKNOWN INDICATION
     Dates: start: 2003, end: 2004
  49. QUININE SULFATE [Concomitant]
     Dates: start: 2006
  50. QUININE SULFATE [Concomitant]
     Dates: start: 2008
  51. RISPERDAL [Concomitant]
     Indication: PRODUCT USED FOR UNKNOWN INDICATION
     Dates: start: 1995
  52. RISPERDAL [Concomitant]
     Dates: start: 1997
  53. RISPERDAL [Concomitant]
     Dates: start: 2000
  54. RISPERDAL [Concomitant]
     Dates: start: 2003, end: 2004
  55. RISPERDAL [Concomitant]
     Dates: start: 2009, end: 2010
  56. RESTORIL [Concomitant]
     Indication: PRODUCT USED FOR UNKNOWN INDICATION
     Dates: start: 2004
  57. SENNA [Concomitant]
     Indication: PRODUCT USED FOR UNKNOWN INDICATION
     Dates: start: 2004, end: 2005
  58. SYNTHROID [Concomitant]
     Indication: PRODUCT USED FOR UNKNOWN INDICATION
     Dates: start: 1995
  59. SYNTHROID [Concomitant]
     Dates: start: 1997
  60. SYNTHROID [Concomitant]
     Dates: start: 2002, end: 2010
  61. TACROLIMUS [Concomitant]
     Indication: PRODUCT USED FOR UNKNOWN INDICATION
     Dates: start: 2004
  62. THYMOGLOBULIN [Concomitant]
     Indication: PRODUCT USED FOR UNKNOWN INDICATION
     Dates: start: 20040925
  63. TOPROL XL [Concomitant]
     Indication: PRODUCT USED FOR UNKNOWN INDICATION
     Dates: start: 2004, end: 2005
  64. TOPROL XL [Concomitant]
     Dates: start: 2010
  65. TISSUE PLASMINOGEN ACTIVATOR, RECOMBINATIVE [Concomitant]
     Indication: PRODUCT USED FOR UNKNOWN INDICATION
     Dates: start: 2003, end: 2004
  66. TRIMOX [Concomitant]
     Indication: PRODUCT USED FOR UNKNOWN INDICATION
     Dates: start: 2002, end: 2004
  67. TYLENOL [Concomitant]
     Indication: PRODUCT USED FOR UNKNOWN INDICATION
     Dates: start: 1992
  68. TYLENOL [Concomitant]
     Dates: start: 1997
  69. TYLENOL [Concomitant]
     Dates: start: 2003, end: 2004
  70. TYLENOL [Concomitant]
     Dates: start: 2008
  71. VANCOMYCIN [Concomitant]
     Indication: PRODUCT USED FOR UNKNOWN INDICATION
     Dates: start: 2003
  72. VANCOMYCIN [Concomitant]
     Dates: start: 2004
  73. VANCOMYCIN [Concomitant]
     Dates: start: 2005
  74. VITAMIN B-12 [Concomitant]
     Indication: PRODUCT USED FOR UNKNOWN INDICATION
     Dates: start: 2001, end: 2001
  75. VITAMIN B-12 [Concomitant]
     Dates: start: 2003, end: 2008
  76. VITAMIN B6 [Concomitant]
     Indication: PRODUCT USED FOR UNKNOWN INDICATION
     Dates: start: 1992
  77. VITAMIN B6 [Concomitant]
     Dates: start: 2003, end: 2006
  78. VITAMIN B6 [Concomitant]
     Dates: start: 2006, end: 2010
  79. ZEMPLAR [Concomitant]
     Indication: PRODUCT USED FOR UNKNOWN INDICATION
     Dates: start: 2003, end: 2004
  80. Z-PAK [Concomitant]
     Indication: PRODUCT USED FOR UNKNOWN INDICATION
     Dates: start: 2001
  81. Z-PAK [Concomitant]
     Dates: start: 2003
  82. Z-PAK [Concomitant]
     Dates: start: 2004
  83. ZYPREXA [Concomitant]
     Indication: PRODUCT USED FOR UNKNOWN INDICATION
     Dates: start: 2000
  84. ZYPREXA [Concomitant]
     Dates: start: 2004
  85. ZYPREXA [Concomitant]
     Dates: start: 2008, end: 2010

REACTIONS (1)
  - Nephrogenic systemic fibrosis [Not Recovered/Not Resolved]
